FAERS Safety Report 5130422-5 (Version None)
Quarter: 2006Q4

REPORT INFORMATION
  Report Type: 
  Country: None (occurrence: None)
  Receive Date: 20061013
  Receipt Date: 20060927
  Transmission Date: 20070319
  Serious: Yes (Other)
  Sender: FDA-Public Use
  Company Number: US-2006-028664

PATIENT
  Age: 45 Year
  Sex: Female

DRUGS (5)
  1. BETASERON [Suspect]
     Indication: MULTIPLE SCLEROSIS
     Dosage: SEE IMAGE
     Route: 058
     Dates: start: 20040101, end: 20051201
  2. BETASERON [Suspect]
     Indication: MULTIPLE SCLEROSIS
     Dosage: SEE IMAGE
     Route: 058
     Dates: start: 20060301, end: 20060922
  3. HORMONES AND RELATED AGENTS [Concomitant]
  4. NEURONTIN [Concomitant]
  5. EFEXOR /USA/ (VENLAFAXINE HYDROCHLORIDE) [Concomitant]

REACTIONS (21)
  - ALOPECIA [None]
  - ARTHRALGIA [None]
  - CHILLS [None]
  - CONFUSIONAL STATE [None]
  - DIARRHOEA [None]
  - DRUG HYPERSENSITIVITY [None]
  - DYSPHAGIA [None]
  - DYSPNOEA [None]
  - GAIT DISTURBANCE [None]
  - INSOMNIA [None]
  - JOINT SWELLING [None]
  - MUSCLE SPASMS [None]
  - NAUSEA [None]
  - OEDEMA PERIPHERAL [None]
  - PAIN [None]
  - RASH ERYTHEMATOUS [None]
  - RASH PAPULAR [None]
  - SKIN ATROPHY [None]
  - SKIN HAEMORRHAGE [None]
  - SKIN LESION [None]
  - SPEECH DISORDER [None]
